FAERS Safety Report 9965865 (Version 1)
Quarter: 2014Q1

REPORT INFORMATION
  Report Type: Report from Study
  Country: US (occurrence: US)
  Receive Date: 20140305
  Receipt Date: 20140305
  Transmission Date: 20141002
  Serious: No
  Sender: FDA-Public Use
  Company Number: US-ABBVIE-13P-163-1123901-00

PATIENT
  Sex: Female
  Weight: 63.56 kg

DRUGS (3)
  1. HUMIRA [Suspect]
     Indication: PSORIATIC ARTHROPATHY
     Dates: start: 2009, end: 201305
  2. ALLEGRA [Concomitant]
     Indication: HYPERSENSITIVITY
  3. UNKNOWN INHALER [Concomitant]
     Indication: ASTHMA
     Route: 055

REACTIONS (7)
  - Joint stiffness [Unknown]
  - Respiratory disorder [Recovered/Resolved]
  - Viral infection [Recovered/Resolved]
  - Abdominal discomfort [Unknown]
  - Diarrhoea [Unknown]
  - Respiratory disorder [Recovered/Resolved]
  - Psoriatic arthropathy [Unknown]
